FAERS Safety Report 9031617 (Version 1)
Quarter: 2013Q1

REPORT INFORMATION
  Report Type: Report from Study
  Country: BE (occurrence: BE)
  Receive Date: 20130124
  Receipt Date: 20130124
  Transmission Date: 20140127
  Serious: Yes (Hospitalization)
  Sender: FDA-Public Use
  Company Number: BE-ASTRAZENECA-2013SE03908

PATIENT
  Age: 27805 Day
  Sex: Male

DRUGS (18)
  1. AZD6140 [Suspect]
     Indication: CORONARY ARTERY DISEASE
     Route: 048
     Dates: start: 20120109, end: 20120421
  2. AZD6140 [Suspect]
     Indication: CORONARY ARTERY DISEASE
     Route: 048
     Dates: start: 20120510
  3. FORZATEN [Concomitant]
     Indication: HYPERTENSION
     Route: 048
     Dates: start: 20120109
  4. SPIRIVA [Concomitant]
     Indication: CHRONIC OBSTRUCTIVE PULMONARY DISEASE
     Route: 055
  5. ZANTAC [Concomitant]
     Indication: GASTRITIS PROPHYLAXIS
     Route: 048
     Dates: start: 20120429
  6. PROGOR [Concomitant]
     Indication: HYPERTENSION
     Route: 048
  7. LORAMET [Concomitant]
     Indication: INSOMNIA
     Route: 048
     Dates: start: 20120501
  8. DACTARIN [Concomitant]
     Indication: ERYTHEMA
     Route: 061
     Dates: start: 20120430
  9. ZOCOR [Concomitant]
     Indication: HYPERCHOLESTEROLAEMIA
     Route: 048
  10. AVENDIA [Concomitant]
     Indication: TYPE 2 DIABETES MELLITUS
     Route: 048
  11. NOVONORM [Concomitant]
     Indication: TYPE 2 DIABETES MELLITUS
     Route: 048
  12. DUROGESIC [Concomitant]
     Indication: ANALGESIC THERAPY
     Dosage: EVERY THREE DAYS
     Route: 062
     Dates: start: 20120427
  13. CEDOCARD [Concomitant]
     Indication: CHEST PAIN
     Route: 048
     Dates: start: 20121224
  14. SERETIDE [Concomitant]
     Indication: CHRONIC OBSTRUCTIVE PULMONARY DISEASE
     Route: 055
  15. PARACETAMOL [Concomitant]
     Indication: POSTOPERATIVE ANALGESIA
     Route: 042
     Dates: start: 20120427
  16. METFORMINE [Concomitant]
     Indication: TYPE 2 DIABETES MELLITUS
     Route: 048
  17. ASA [Concomitant]
     Route: 048
     Dates: end: 20120425
  18. ASA [Concomitant]
     Route: 048
     Dates: start: 20120504

REACTIONS (1)
  - Iron deficiency anaemia [Not Recovered/Not Resolved]
